FAERS Safety Report 6360680-0 (Version None)
Quarter: 2009Q3

REPORT INFORMATION
  Report Type: 
  Country: None (occurrence: None)
  Receive Date: 20090918
  Receipt Date: 20090914
  Transmission Date: 20100115
  Serious: Yes (Hospitalization)
  Sender: FDA-Public Use
  Company Number: US-BIOGENIDEC-2009BI029583

PATIENT
  Age: 45 Year
  Sex: Female

DRUGS (1)
  1. TYSABRI [Suspect]
     Indication: MULTIPLE SCLEROSIS
     Route: 042
     Dates: start: 20070110

REACTIONS (9)
  - ATAXIA [None]
  - BALANCE DISORDER [None]
  - GAIT DISTURBANCE [None]
  - HEMIPARESIS [None]
  - LABYRINTHITIS [None]
  - MICTURITION URGENCY [None]
  - MULTIPLE SCLEROSIS [None]
  - VESTIBULAR DISORDER [None]
  - VOMITING [None]
